FAERS Safety Report 8485617-X (Version None)
Quarter: 2012Q3

REPORT INFORMATION
  Report Type: 
  Country: None (occurrence: None)
  Receive Date: 20120703
  Receipt Date: 20120627
  Transmission Date: 20120928
  Serious: Yes (Hospitalization)
  Sender: FDA-Public Use
  Company Number: US-JNJFOC-20120610126

PATIENT
  Sex: Female
  Weight: 39.4 kg

DRUGS (3)
  1. HUMIRA [Concomitant]
     Dates: start: 20100129
  2. MESALAMINE [Concomitant]
     Route: 048
  3. REMICADE [Suspect]
     Indication: INFLAMMATORY BOWEL DISEASE
     Route: 042
     Dates: end: 20100106

REACTIONS (1)
  - FAILURE TO THRIVE [None]
